FAERS Safety Report 18911052 (Version 1)
Quarter: 2021Q1

REPORT INFORMATION
  Report Type: Report from Study
  Country: DE (occurrence: DE)
  Receive Date: 20210218
  Receipt Date: 20210218
  Transmission Date: 20210420
  Serious: Yes (Hospitalization)
  Sender: FDA-Public Use
  Company Number: DE-SHIRE-DE202019800

PATIENT

DRUGS (17)
  1. PARATHYROID HORMONE [Suspect]
     Active Substance: PARATHYROID HORMONE
     Indication: HYPOPARATHYROIDISM
     Dosage: 50 MICROGRAM, 2X/DAY:BID
     Route: 058
     Dates: start: 20190912
  2. PARATHYROID HORMONE [Suspect]
     Active Substance: PARATHYROID HORMONE
     Dosage: 100 MICROGRAM
     Route: 058
     Dates: start: 20200907
  3. PARATHYROID HORMONE [Suspect]
     Active Substance: PARATHYROID HORMONE
     Dosage: 100 MICROGRAM
     Route: 058
     Dates: start: 20200907
  4. CALCILAC KT [Concomitant]
     Indication: HYPOPARATHYROIDISM
  5. CANDESARTAN. [Concomitant]
     Active Substance: CANDESARTAN
     Indication: HYPERTONIA
  6. METOHEXAL [METOPROLOL TARTRATE] [Concomitant]
     Active Substance: METOPROLOL TARTRATE
     Indication: HYPERTONIA
  7. PARATHYROID HORMONE [Suspect]
     Active Substance: PARATHYROID HORMONE
     Indication: HYPOPARATHYROIDISM
     Dosage: 50 MICROGRAM, 2X/DAY:BID
     Route: 058
     Dates: start: 20190912
  8. PARATHYROID HORMONE [Suspect]
     Active Substance: PARATHYROID HORMONE
     Dosage: 100 MICROGRAM
     Route: 058
     Dates: start: 20190912
  9. L?THYROXIN [LEVOTHYROXINE] [Concomitant]
     Active Substance: LEVOTHYROXINE SODIUM
     Indication: THYROIDECTOMY
  10. PARATHYROID HORMONE [Suspect]
     Active Substance: PARATHYROID HORMONE
     Dosage: 100 MICROGRAM
     Route: 058
     Dates: start: 20200907
  11. CEFAVIT D3 K2 MG [Concomitant]
     Indication: HYPOPARATHYROIDISM
  12. CEFAVIT B?COMPLETE [Concomitant]
     Indication: HYPOPARATHYROIDISM
  13. PARATHYROID HORMONE [Suspect]
     Active Substance: PARATHYROID HORMONE
     Dosage: 100 MICROGRAM
     Route: 058
     Dates: start: 20190912
  14. ALFACALCIDOL [Concomitant]
     Active Substance: ALFACALCIDOL
     Indication: HYPOPARATHYROIDISM
  15. PANTOPRAZOLE [Concomitant]
     Active Substance: PANTOPRAZOLE
     Indication: GASTRITIS PROPHYLAXIS
  16. PARATHYROID HORMONE [Suspect]
     Active Substance: PARATHYROID HORMONE
     Indication: HYPOPARATHYROIDISM
     Dosage: 50 MICROGRAM, 2X/DAY:BID
     Route: 058
     Dates: start: 20190912
  17. PARATHYROID HORMONE [Suspect]
     Active Substance: PARATHYROID HORMONE
     Dosage: 100 MICROGRAM
     Route: 058
     Dates: start: 20190912

REACTIONS (4)
  - Vomiting [Recovered/Resolved]
  - Tachycardia [Recovered/Resolved]
  - Off label use [Recovered/Resolved]
  - Diarrhoea [Recovered/Resolved]

NARRATIVE: CASE EVENT DATE: 20200427
